FAERS Safety Report 10215738 (Version 1)
Quarter: 2014Q2

REPORT INFORMATION
  Report Type: Spontaneous
  Country: US (occurrence: None)
  Receive Date: 20140520
  Receipt Date: 20140520
  Transmission Date: 20141212
  Serious: Yes (Death)
  Sender: FDA-Public Use
  Company Number: GBI002305

PATIENT
  Age: 74 Year
  Sex: Female

DRUGS (2)
  1. PROFILNINE SD [Suspect]
     Indication: INTERNATIONAL NORMALISED RATIO INCREASED
     Route: 042
     Dates: start: 20130402, end: 20130402
  2. WARFARIN [Concomitant]

REACTIONS (3)
  - Cardiac arrest [None]
  - Thrombosis [None]
  - Metastatic neoplasm [None]
